FAERS Safety Report 9233433 (Version 1)
Quarter: 2013Q2

REPORT INFORMATION
  Report Type: Spontaneous
  Country: None (occurrence: US)
  Receive Date: 20130416
  Receipt Date: 20130416
  Transmission Date: 20140414
  Serious: No
  Sender: FDA-Public Use
  Company Number: US-BANPHARM-20131071

PATIENT
  Sex: Male

DRUGS (1)
  1. ALEVE LIQUID GELS 220MG [Suspect]
     Dosage: 1 DF,
     Route: 048
     Dates: start: 20120711

REACTIONS (2)
  - Hypoaesthesia oral [Unknown]
  - Wrong technique in drug usage process [Unknown]
